FAERS Safety Report 16184304 (Version 2)
Quarter: 2019Q2

REPORT INFORMATION
  Report Type: Spontaneous
  Country: US (occurrence: US)
  Receive Date: 20190411
  Receipt Date: 20190528
  Transmission Date: 20190711
  Serious: No
  Sender: FDA-Public Use
  Company Number: US-PFIZER INC-2019151814

PATIENT

DRUGS (3)
  1. PLAQUENIL SULFATE [Suspect]
     Active Substance: HYDROXYCHLOROQUINE SULFATE
     Dosage: 200 MG, ALTERNATE DAY
  2. SULFASALAZINE. [Suspect]
     Active Substance: SULFASALAZINE
     Dosage: 500 MG, TWICE A DAY
  3. PLAQUENIL SULFATE [Suspect]
     Active Substance: HYDROXYCHLOROQUINE SULFATE
     Dosage: 200 MG, 2X/DAY

REACTIONS (2)
  - Expired product administered [Unknown]
  - Diarrhoea [Unknown]
